FAERS Safety Report 21193816 (Version 2)
Quarter: 2022Q3

REPORT INFORMATION
  Report Type: Other
  Country: CA (occurrence: CA)
  Receive Date: 20220810
  Receipt Date: 20220826
  Transmission Date: 20221026
  Serious: Yes (Death, Hospitalization, Other)
  Sender: FDA-Public Use
  Company Number: CA-CELLTRION INC.-2022CA012384

PATIENT

DRUGS (18)
  1. RITUXIMAB [Suspect]
     Active Substance: RITUXIMAB
     Indication: Systemic lupus erythematosus
     Dosage: UNK
  2. RITUXIMAB [Suspect]
     Active Substance: RITUXIMAB
     Dosage: UNK
     Route: 042
  3. RITUXIMAB [Suspect]
     Active Substance: RITUXIMAB
     Dosage: 1000.0 MILLIGRAM 1 EVERY 15 DAYS
     Route: 042
  4. ALUMINIUM HYDROXIDE;DIPHENHYDRAMINE;LIDOCAINE;MAGNESIUM HYDROXIDE;NYST [Concomitant]
  5. CIALIS [Concomitant]
     Active Substance: TADALAFIL
  6. DOMPERIDONE [Concomitant]
     Active Substance: DOMPERIDONE
  7. ESOMEPRAZOLE [Concomitant]
     Active Substance: ESOMEPRAZOLE
     Route: 065
  8. GRAVOL [Concomitant]
     Active Substance: DIMENHYDRINATE
  9. HYDROXYCHLOROQUINE [Concomitant]
     Active Substance: HYDROXYCHLOROQUINE
  10. HYDROXYCHLOROQUINE SULFATE [Concomitant]
     Active Substance: HYDROXYCHLOROQUINE SULFATE
  11. MIRENA [Concomitant]
     Active Substance: LEVONORGESTREL
  12. MYCOPHENOLATE MOFETIL [Concomitant]
     Active Substance: MYCOPHENOLATE MOFETIL
     Indication: Vasculitis gastrointestinal
     Route: 048
  13. MYCOPHENOLATE MOFETIL [Concomitant]
     Active Substance: MYCOPHENOLATE MOFETIL
     Indication: Systemic lupus erythematosus
  14. NUVARING [Concomitant]
     Active Substance: ETHINYL ESTRADIOL\ETONOGESTREL
  15. PREDNISONE [Concomitant]
     Active Substance: PREDNISONE
  16. RITUXIMAB [Concomitant]
     Active Substance: RITUXIMAB
     Route: 042
  17. GINGER [Concomitant]
     Active Substance: GINGER
  18. ZOFRAN [Concomitant]
     Active Substance: ONDANSETRON HYDROCHLORIDE

REACTIONS (2)
  - COVID-19 [Fatal]
  - Off label use [Unknown]
